FAERS Safety Report 6454484-8 (Version None)
Quarter: 2009Q4

REPORT INFORMATION
  Report Type: 
  Country: None (occurrence: None)
  Receive Date: 20091118
  Receipt Date: 20091116
  Transmission Date: 20100525
  Serious: Yes (Hospitalization)
  Sender: FDA-Public Use
  Company Number: SPV1-2009-02040

PATIENT
  Age: 52 Year
  Sex: Female
  Weight: 44.4 kg

DRUGS (2)
  1. FOSRENOL [Suspect]
     Indication: HYPERPHOSPHATAEMIA
     Dosage: 1000 MG, 3X/DAY:TID, ORAL
     Route: 048
     Dates: start: 20061201
  2. DIALYVITE 3000 (ASCORBIC ACID, FOLIC ACID, VITAMIN-B-KOMPLEX STANDARD) [Concomitant]

REACTIONS (3)
  - DRUG HYPERSENSITIVITY [None]
  - INTESTINAL OBSTRUCTION [None]
  - LETHARGY [None]
